FAERS Safety Report 16633805 (Version 1)
Quarter: 2019Q3

REPORT INFORMATION
  Report Type: Spontaneous
  Country: US (occurrence: US)
  Receive Date: 20190725
  Receipt Date: 20190725
  Transmission Date: 20191004
  Serious: Yes (Death)
  Sender: FDA-Public Use
  Company Number: None

PATIENT
  Age: 79 Year
  Sex: Male

DRUGS (22)
  1. APIXABAN [Concomitant]
     Active Substance: APIXABAN
  2. SENNA [Concomitant]
     Active Substance: SENNA LEAF\SENNOSIDES\SENNOSIDES A AND B
  3. RENAPLEX D3 [Concomitant]
  4. ANDEXXA [Suspect]
     Active Substance: ANDEXANET ALFA
     Indication: PROCOAGULANT THERAPY
     Dosage: ?          OTHER FREQUENCY:ONCE THEN 8MG/MIN;?
     Route: 042
     Dates: start: 20180608, end: 20180608
  5. DIPROLENE [Concomitant]
     Active Substance: BETAMETHASONE DIPROPIONATE
  6. SITAGLIPTIN [Concomitant]
     Active Substance: SITAGLIPTIN
  7. AMLODIPINE [Concomitant]
     Active Substance: AMLODIPINE BESYLATE
  8. VITAMIN D3 [Concomitant]
     Active Substance: CHOLECALCIFEROL
  9. KETOCONAZOLE CREAM [Concomitant]
     Active Substance: KETOCONAZOLE
  10. OMEPRAZOLE. [Concomitant]
     Active Substance: OMEPRAZOLE
  11. VANCOMYCIN [Concomitant]
     Active Substance: VANCOMYCIN
  12. ASPIRIN. [Concomitant]
     Active Substance: ASPIRIN
  13. FOSPHENYTOIN [Concomitant]
     Active Substance: FOSPHENYTOIN
  14. CINACALCET. [Concomitant]
     Active Substance: CINACALCET
  15. DOCUSATE [Concomitant]
     Active Substance: DOCUSATE
  16. FEXOFENADINE [Concomitant]
     Active Substance: FEXOFENADINE HYDROCHLORIDE
  17. LOVASTATIN. [Concomitant]
     Active Substance: LOVASTATIN
  18. FOLIC ACID WITH VITAMINS B AND C [Concomitant]
  19. METOPROLOL. [Concomitant]
     Active Substance: METOPROLOL
  20. SEVELAMER [Concomitant]
     Active Substance: SEVELAMER
  21. ZOSYN [Concomitant]
     Active Substance: PIPERACILLIN SODIUM\TAZOBACTAM SODIUM
  22. PHYTONADIONE. [Concomitant]
     Active Substance: PHYTONADIONE

REACTIONS (4)
  - Subdural haematoma [None]
  - Shock [None]
  - Unresponsive to stimuli [None]
  - Acute myocardial infarction [None]

NARRATIVE: CASE EVENT DATE: 20190608
